FAERS Safety Report 12892759 (Version 1)
Quarter: 2016Q4

REPORT INFORMATION
  Report Type: Spontaneous
  Country: US (occurrence: US)
  Receive Date: 20161028
  Receipt Date: 20161028
  Transmission Date: 20170207
  Serious: No
  Sender: FDA-Public Use
  Company Number: None

PATIENT

DRUGS (1)
  1. LISINOPRIL. [Suspect]
     Active Substance: LISINOPRIL

REACTIONS (3)
  - Wrong drug administered [None]
  - Blood pressure increased [None]
  - Drug dispensed to wrong patient [None]
